FAERS Safety Report 5931616-9 (Version None)
Quarter: 2008Q4

REPORT INFORMATION
  Report Type: 
  Country: None (occurrence: None)
  Receive Date: 20081027
  Receipt Date: 20081024
  Transmission Date: 20090506
  Serious: Yes (Hospitalization)
  Sender: FDA-Public Use
  Company Number: SE-WYE-G02125608

PATIENT
  Sex: Male
  Weight: 105 kg

DRUGS (2)
  1. RAPAMUNE [Suspect]
     Indication: PROPHYLAXIS AGAINST GRAFT VERSUS HOST DISEASE
     Route: 048
     Dates: start: 20080128, end: 20080222
  2. TACROLIMUS [Suspect]
     Indication: PROPHYLAXIS AGAINST GRAFT VERSUS HOST DISEASE
     Dosage: 1MG X 2, INTERVAL UNSPECIFIED
     Route: 048
     Dates: start: 20080128, end: 20080606

REACTIONS (1)
  - THROMBOTIC MICROANGIOPATHY [None]
